FAERS Safety Report 5345950-7 (Version None)
Quarter: 2007Q2

REPORT INFORMATION
  Report Type: 
  Country: None (occurrence: None)
  Receive Date: 20070605
  Receipt Date: 20070524
  Transmission Date: 20071010
  Serious: Yes (Congenital Anomaly)
  Sender: FDA-Public Use
  Company Number: B0473673A

PATIENT

DRUGS (6)
  1. ABACAVIR [Suspect]
     Indication: DRUG USE FOR UNKNOWN INDICATION
     Dosage: 1%DS PER DAY
     Dates: start: 20061225
  2. INVIRASE [Suspect]
     Indication: DRUG USE FOR UNKNOWN INDICATION
     Dosage: 2000MG PER DAY
     Dates: start: 20060411
  3. RITONAVIR [Suspect]
     Indication: DRUG USE FOR UNKNOWN INDICATION
     Dosage: 200MG PER DAY
     Dates: start: 20060411
  4. VIRAMUNE [Suspect]
     Indication: DRUG USE FOR UNKNOWN INDICATION
     Dosage: 400MG PER DAY
     Dates: end: 20061225
  5. COMBIVIR [Suspect]
     Indication: DRUG USE FOR UNKNOWN INDICATION
     Dates: start: 20060411
  6. LAMIVUDINE [Suspect]
     Indication: DRUG USE FOR UNKNOWN INDICATION
     Dates: end: 20061225

REACTIONS (2)
  - ALPHA 1 FOETOPROTEIN ABNORMAL [None]
  - DRUG EXPOSURE DURING PREGNANCY [None]
